FAERS Safety Report 25124908 (Version 1)
Quarter: 2025Q1

REPORT INFORMATION
  Report Type: Spontaneous
  Country: US (occurrence: None)
  Receive Date: 20250326
  Receipt Date: 20250326
  Transmission Date: 20250409
  Serious: Yes (unspecified)
  Sender: FDA-CTU
  Company Number: None

PATIENT
  Age: 65 Year
  Sex: Female

DRUGS (1)
  1. POMALYST [Suspect]
     Active Substance: POMALIDOMIDE
     Indication: Hereditary haemorrhagic telangiectasia
     Dosage: 2MG QD ORAL
     Route: 048
     Dates: start: 20241106

REACTIONS (3)
  - Rash [None]
  - Pruritus [None]
  - Constipation [None]

NARRATIVE: CASE EVENT DATE: 20250311
